FAERS Safety Report 9136237 (Version 1)
Quarter: 2013Q1

REPORT INFORMATION
  Report Type: Spontaneous
  Country: US (occurrence: US)
  Receive Date: 20130304
  Receipt Date: 20130304
  Transmission Date: 20140127
  Serious: No
  Sender: FDA-Public Use
  Company Number: US-ABBOTT-12P-163-0959658-00

PATIENT
  Age: 50 None
  Sex: Male
  Weight: 87.17 kg

DRUGS (4)
  1. ANDROGEL 1% [Suspect]
     Indication: BLOOD TESTOSTERONE DECREASED
     Dosage: 1 PACKET DAILY
     Dates: start: 201206, end: 201206
  2. ANDROGEL 1% [Suspect]
     Dosage: 1 PACKET DAILY
     Dates: start: 20120712
  3. IBUPROFEN [Concomitant]
     Indication: PRODUCT USED FOR UNKNOWN INDICATION
  4. OMEPRAZOLE [Concomitant]
     Indication: GASTROOESOPHAGEAL REFLUX DISEASE
     Dates: start: 20120712, end: 20120717

REACTIONS (2)
  - Dizziness [Recovered/Resolved]
  - Blood testosterone decreased [Unknown]
